FAERS Safety Report 6751797-7 (Version None)
Quarter: 2010Q2

REPORT INFORMATION
  Report Type: 
  Country: None (occurrence: None)
  Receive Date: 20100602
  Receipt Date: 20100527
  Transmission Date: 20101027
  Serious: Yes (Hospitalization)
  Sender: FDA-Public Use
  Company Number: US-JNJCH-2010013032

PATIENT
  Age: 10 Year
  Sex: Female

DRUGS (1)
  1. CHILDREN'S ZYRTEC ALLERGY [Suspect]
     Indication: HYPERSENSITIVITY
     Dosage: TEXT:UNKNOWN
     Route: 048

REACTIONS (7)
  - ABASIA [None]
  - ACTIVITIES OF DAILY LIVING IMPAIRED [None]
  - BLISTER [None]
  - BURNING SENSATION [None]
  - PAIN [None]
  - PRODUCT QUALITY ISSUE [None]
  - RASH [None]
